FAERS Safety Report 13060736 (Version 2)
Quarter: 2017Q1

REPORT INFORMATION
  Report Type: Spontaneous
  Country: US (occurrence: US)
  Receive Date: 20161225
  Receipt Date: 20170123
  Transmission Date: 20170428
  Serious: No
  Sender: FDA-Public Use
  Company Number: US-ASTRAZENECA-2016SF31459

PATIENT
  Age: 47 Year
  Sex: Male
  Weight: 120.2 kg

DRUGS (3)
  1. ZITHROMAX [Suspect]
     Active Substance: AZITHROMYCIN DIHYDRATE
     Indication: ALLERGIC BRONCHITIS
     Route: 065
  2. BYDUREON [Suspect]
     Active Substance: EXENATIDE
     Indication: TYPE 2 DIABETES MELLITUS
     Route: 058
     Dates: start: 2016
  3. LISINOPRIL. [Suspect]
     Active Substance: LISINOPRIL
     Indication: BLOOD PRESSURE ABNORMAL
     Dosage: DAILY
     Route: 048

REACTIONS (8)
  - Allergic bronchitis [Recovered/Resolved with Sequelae]
  - Drug hypersensitivity [Recovered/Resolved]
  - Underdose [Unknown]
  - Product quality issue [Unknown]
  - Urticaria [Unknown]
  - Injection site pain [Unknown]
  - Drug dose omission [Unknown]
  - Cough [Not Recovered/Not Resolved]

NARRATIVE: CASE EVENT DATE: 2016
